FAERS Safety Report 23647792 (Version 2)
Quarter: 2024Q3

REPORT INFORMATION
  Report Type: Spontaneous
  Country: JP (occurrence: JP)
  Receive Date: 20240319
  Receipt Date: 20240709
  Transmission Date: 20241017
  Serious: Yes (Death, Other)
  Sender: MERCK
  Company Number: JP-MSD-M2024-09698

PATIENT
  Age: 76 Year
  Sex: Male

DRUGS (3)
  1. KEYTRUDA [Suspect]
     Active Substance: PEMBROLIZUMAB
     Indication: Non-small cell lung cancer stage IV
     Dosage: 200 MILLIGRAM, Q3W
     Route: 041
     Dates: start: 20190801, end: 20200218
  2. CARBOPLATIN [Suspect]
     Active Substance: CARBOPLATIN
     Indication: Non-small cell lung cancer stage IV
     Dosage: COMPLETED ALL 4 COURSES
     Route: 041
     Dates: start: 20190801
  3. PEMETREXED DISODIUM [Suspect]
     Active Substance: PEMETREXED DISODIUM
     Indication: Non-small cell lung cancer stage IV
     Dosage: 500 MILLIGRAM, Q3W
     Route: 041
     Dates: start: 20190801

REACTIONS (3)
  - Malignant neoplasm progression [Fatal]
  - Neutrophil count decreased [Unknown]
  - Anaemia [Unknown]
